FAERS Safety Report 8449952-3 (Version None)
Quarter: 2012Q2

REPORT INFORMATION
  Report Type: 
  Country: None (occurrence: None)
  Receive Date: 20120620
  Receipt Date: 20120613
  Transmission Date: 20120825
  Serious: Yes (Hospitalization, Other)
  Sender: FDA-Public Use
  Company Number: PHHY2009CA17712

PATIENT
  Sex: Male

DRUGS (5)
  1. SANDOSTATIN LAR [Suspect]
     Dosage: 30 MG, QMO
     Route: 030
  2. SANDOSTATIN LAR [Suspect]
     Dosage: 30 MG, EVERY 4 WEEKS
     Route: 030
  3. SANDOSTATIN LAR [Suspect]
     Dosage: 30 MG, QMO
     Route: 030
  4. SANDOSTATIN LAR [Suspect]
     Indication: NEUROENDOCRINE CARCINOMA METASTATIC
     Dosage: 20 MG, QMO
     Route: 030
     Dates: start: 20080507
  5. SANDOSTATIN LAR [Suspect]
     Dosage: 30 MG EVERY 4 WEEKS
     Route: 030

REACTIONS (8)
  - GASTROENTERITIS [None]
  - INFLUENZA [None]
  - BLOOD PRESSURE INCREASED [None]
  - BALANCE DISORDER [None]
  - CEREBRAL HAEMORRHAGE [None]
  - CONVULSION [None]
  - CONFUSIONAL STATE [None]
  - MEMORY IMPAIRMENT [None]
